FAERS Safety Report 5102093-5 (Version None)
Quarter: 2006Q3

REPORT INFORMATION
  Report Type: 
  Country: None (occurrence: None)
  Receive Date: 20060912
  Receipt Date: 20060902
  Transmission Date: 20061208
  Serious: Yes (Hospitalization)
  Sender: FDA-Public Use
  Company Number: US-BAYER-200613777BCC

PATIENT
  Sex: Female

DRUGS (1)
  1. ASPIRIN [Suspect]
     Indication: PAIN
     Route: 048

REACTIONS (4)
  - BLEEDING TIME ABNORMAL [None]
  - LOSS OF CONSCIOUSNESS [None]
  - PROTEIN C DEFICIENCY [None]
  - THROMBOSIS [None]
